FAERS Safety Report 6216849-9 (Version None)
Quarter: 2009Q2

REPORT INFORMATION
  Report Type: 
  Country: None (occurrence: None)
  Receive Date: 20090603
  Receipt Date: 20090603
  Transmission Date: 20091009
  Serious: Yes (Hospitalization)
  Sender: FDA-Public Use
  Company Number: None

PATIENT
  Sex: Female
  Weight: 108.8633 kg

DRUGS (1)
  1. ALLOPURINOL 100MG TAB [Suspect]
     Indication: GOUT
     Dosage: 1 TAB PER DAY
     Dates: start: 20090203, end: 20090327

REACTIONS (3)
  - DIPLOPIA [None]
  - EPISTAXIS [None]
  - SWELLING [None]
